FAERS Safety Report 12086374 (Version 2)
Quarter: 2016Q1

REPORT INFORMATION
  Report Type: Spontaneous
  Country: US (occurrence: US)
  Receive Date: 20160217
  Receipt Date: 20160222
  Transmission Date: 20160526
  Serious: Yes (Hospitalization, Other)
  Sender: FDA-Public Use
  Company Number: US-BAXALTA-2016BLT000797

PATIENT
  Age: 48 Year
  Sex: Female

DRUGS (4)
  1. DIFLUCAN [Concomitant]
     Active Substance: FLUCONAZOLE
     Indication: INFECTION
  2. GAMMAGARD LIQUID [Suspect]
     Active Substance: HUMAN IMMUNOGLOBULIN G
     Indication: IMMUNODEFICIENCY COMMON VARIABLE
     Dosage: 7 G, 1X A WEEK
     Route: 058
     Dates: start: 20141224
  3. GAMMAGARD LIQUID [Suspect]
     Active Substance: HUMAN IMMUNOGLOBULIN G
     Dosage: 7 G, 2X A WEEK
     Route: 058
     Dates: start: 2015, end: 20160212
  4. DIFLUCAN [Concomitant]
     Active Substance: FLUCONAZOLE
     Indication: SYSTEMIC MYCOSIS
     Dosage: 400 MG, 1X A DAY
     Route: 048
     Dates: start: 20120512

REACTIONS (10)
  - Condition aggravated [Not Recovered/Not Resolved]
  - Infection [Not Recovered/Not Resolved]
  - Needle issue [Unknown]
  - Fat tissue decreased [Unknown]
  - Drug effect decreased [Not Recovered/Not Resolved]
  - Anaphylactic reaction [Not Recovered/Not Resolved]
  - Malaise [Not Recovered/Not Resolved]
  - Road traffic accident [Recovered/Resolved]
  - Loss of consciousness [Recovered/Resolved]
  - Hair growth abnormal [Unknown]

NARRATIVE: CASE EVENT DATE: 2015
